FAERS Safety Report 8037834-0 (Version None)
Quarter: 2012Q1

REPORT INFORMATION
  Report Type: 
  Country: None (occurrence: None)
  Receive Date: 20120111
  Receipt Date: 20111228
  Transmission Date: 20120608
  Serious: Yes (Hospitalization, Other)
  Sender: FDA-Public Use
  Company Number: PHHY2009AU45356

PATIENT
  Sex: Male

DRUGS (8)
  1. ATIVAN [Concomitant]
     Indication: PAIN
     Dosage: 0.5 UKN, PRN
  2. ANTIHYPERTENSIVES [Concomitant]
  3. STALEVO 100 [Suspect]
     Dosage: 200/50/200 FIVE TMES DAILY
     Dates: start: 20110101
  4. STALEVO 100 [Suspect]
     Dosage: 900 MG, PER DAY (6 DIVIDED DOSES)
  5. STALEVO 100 [Suspect]
     Dosage: 4 DF, (100/ 25/200 FOUR TIMES A DAY)
     Dates: start: 20090101
  6. LYRICA [Concomitant]
     Indication: PAIN
  7. STALEVO 100 [Suspect]
     Dosage: 200/50/200
  8. STALEVO 100 [Suspect]
     Dosage: 300 MG- 400 MG PER DAY

REACTIONS (11)
  - PAIN [None]
  - MUSCLE TWITCHING [None]
  - MUSCLE RIGIDITY [None]
  - TREMOR [None]
  - AGITATION [None]
  - ANXIETY [None]
  - HERPES ZOSTER [None]
  - DRUG EFFECT DECREASED [None]
  - INSOMNIA [None]
  - DEPRESSION [None]
  - NIGHTMARE [None]
